FAERS Safety Report 7707171-X (Version None)
Quarter: 2011Q3

REPORT INFORMATION
  Report Type: 
  Country: None (occurrence: None)
  Receive Date: 20110824
  Receipt Date: 20110817
  Transmission Date: 20111222
  Serious: Yes (Death, Other)
  Sender: FDA-Public Use
  Company Number: US-BAYER-200941729NA

PATIENT
  Age: 67 Year
  Sex: Female
  Weight: 63.492 kg

DRUGS (19)
  1. PREMARIN [Concomitant]
     Dosage: .625 MG, THREE WEEKE OUT OF A MONTH
     Route: 048
  2. FUROSEMIDE [Concomitant]
     Dosage: 100 MG, UNK
     Route: 042
  3. ROCURONIUM BROMIDE [Concomitant]
     Dosage: 10 MG, UNK
     Route: 042
     Dates: start: 20010417, end: 20010417
  4. DILTIAZEM [Concomitant]
     Dosage: 300 MG, QD
     Route: 048
  5. CEFUROXIME [Concomitant]
     Dosage: 1.5 G, UNK
     Route: 042
     Dates: start: 20010417
  6. EPOETIN ALFA [Concomitant]
     Dosage: 3000 U, UNK
     Route: 042
     Dates: start: 20010417
  7. PHENYLEPHRINE [PHENYLEPHRINE] [Concomitant]
     Dosage: 1 ML, UNK
     Route: 042
     Dates: start: 20010417, end: 20010417
  8. TRASYLOL [Suspect]
     Indication: CORONARY ARTERY BYPASS
     Dosage: 50CC/HR INFUSION
     Route: 042
     Dates: start: 20010417, end: 20010417
  9. HEPARIN [Concomitant]
     Dosage: 25000 U, UNK
     Route: 042
     Dates: start: 20010417
  10. MILRINONE [Concomitant]
     Dosage: 20 MG, UNK
     Route: 042
     Dates: start: 20010417, end: 20010417
  11. PROTAMINE [Concomitant]
  12. GLUCOTROL XL [Concomitant]
     Dosage: 15 MG, QD,MORINING
  13. PREVACID [Concomitant]
     Dosage: 30 MG, QD
     Route: 048
  14. CLONIDINE [Concomitant]
     Dosage: .2 MG, BID
     Route: 048
  15. DOPAMINE HCL [Concomitant]
     Dosage: RENAL DOSING
     Route: 042
     Dates: start: 20010417, end: 20010417
  16. TRASYLOL [Suspect]
     Indication: MITRAL VALVE REPAIR
  17. VANCOMYCIN HCL [Concomitant]
     Dosage: 1 G, UNK
     Route: 042
     Dates: start: 20010417, end: 20010417
  18. METOPROLOL [Concomitant]
     Dosage: 50 MG, QD
     Route: 048
  19. GLUCOTROL XL [Concomitant]
     Dosage: 10 MG, QD,EVENING
     Route: 048

REACTIONS (13)
  - RENAL INJURY [None]
  - UNEVALUABLE EVENT [None]
  - PAIN [None]
  - DEATH [None]
  - RENAL IMPAIRMENT [None]
  - STRESS [None]
  - ANXIETY [None]
  - MULTI-ORGAN FAILURE [None]
  - FEAR [None]
  - EMOTIONAL DISTRESS [None]
  - INJURY [None]
  - RENAL FAILURE [None]
  - ANHEDONIA [None]
